FAERS Safety Report 5109339-8 (Version None)
Quarter: 2006Q3

REPORT INFORMATION
  Report Type: 
  Country: None (occurrence: None)
  Receive Date: 20060918
  Receipt Date: 20060905
  Transmission Date: 20061208
  Serious: Yes (Other)
  Sender: FDA-Public Use
  Company Number: 2006110341

PATIENT
  Age: 51 Year
  Sex: Male

DRUGS (6)
  1. LIPITOR [Suspect]
     Indication: HYPERLIPIDAEMIA
     Dosage: 20 MG (20 MG, 1 IN 1 D)
     Dates: start: 20030501, end: 20030920
  2. ZOLPIDEM TARTRATE [Concomitant]
  3. IRON [Concomitant]
  4. NPH INSULIN [Concomitant]
  5. PAROXETINE HCL [Concomitant]
  6. PANTOPRAZOLE SODIUM [Concomitant]

REACTIONS (3)
  - AUTOIMMUNE HEPATITIS [None]
  - HEPATIC FIBROSIS [None]
  - HEPATIC NECROSIS [None]
